FAERS Safety Report 8564723-5 (Version None)
Quarter: 2012Q3

REPORT INFORMATION
  Report Type: 
  Country: None (occurrence: None)
  Receive Date: 20120723
  Receipt Date: 20120711
  Transmission Date: 20120928
  Serious: Yes (Life-Threatening, Other)
  Sender: FDA-Public Use
  Company Number: AUR-APL-2012-03063

PATIENT
  Age: 87 Year
  Sex: Male
  Weight: 84.81 kg

DRUGS (10)
  1. ZAROXOLYN [Suspect]
     Indication: CARDIAC FAILURE CONGESTIVE
     Dates: start: 20120129
  2. SPIRONOLACTONE [Suspect]
     Indication: CARDIAC FAILURE CONGESTIVE
     Dates: start: 20090121
  3. AMBIEN [Concomitant]
  4. WARFARIN SODIUM [Concomitant]
  5. COLCHICINE (COLCHIDINE) [Concomitant]
  6. TORSEMIDE [Suspect]
     Indication: CARDIAC FAILURE CONGESTIVE
     Dates: start: 20100825
  7. ALLOPURINOL [Concomitant]
  8. SYNTHROID [Concomitant]
  9. TAFAMIDIS MEGLUMINE [Suspect]
     Indication: AMYLOIDOSIS
     Dosage: 20MG (20 MG, 1 IN 1 D),ORAL
     Route: 048
     Dates: start: 20081205
  10. LIPITOR [Concomitant]

REACTIONS (4)
  - PERITONEAL DIALYSIS [None]
  - CARDIAC FAILURE CONGESTIVE [None]
  - CONDITION AGGRAVATED [None]
  - RENAL FAILURE [None]
